FAERS Safety Report 13670814 (Version 1)
Quarter: 2017Q2

REPORT INFORMATION
  Report Type: Spontaneous
  Country: US (occurrence: US)
  Receive Date: 20170620
  Receipt Date: 20170620
  Transmission Date: 20170830
  Serious: No
  Sender: FDA-Public Use
  Company Number: US-ROCHE-1386265

PATIENT
  Sex: Female

DRUGS (3)
  1. ARIMIDEX [Concomitant]
     Active Substance: ANASTROZOLE
  2. FASLODEX [Concomitant]
     Active Substance: FULVESTRANT
  3. XELODA [Suspect]
     Active Substance: CAPECITABINE
     Indication: BREAST CANCER
     Dosage: THREE WEEK CYCLE, ?4 PILLS
     Route: 048

REACTIONS (5)
  - Fatigue [Not Recovered/Not Resolved]
  - Viral upper respiratory tract infection [Unknown]
  - Irritability [Unknown]
  - Drug withdrawal syndrome [Unknown]
  - Nervousness [Not Recovered/Not Resolved]
